FAERS Safety Report 6404982-8 (Version None)
Quarter: 2009Q4

REPORT INFORMATION
  Report Type: 
  Country: None (occurrence: None)
  Receive Date: 20091019
  Receipt Date: 20091007
  Transmission Date: 20100525
  Serious: Yes (Death)
  Sender: FDA-Public Use
  Company Number: JP-PFIZER INC-2009230122

PATIENT
  Age: 83 Year

DRUGS (10)
  1. CELECOX [Suspect]
     Indication: RHEUMATOID ARTHRITIS
     Dosage: 200 MG, UNK/D
     Route: 048
     Dates: start: 20071211, end: 20090316
  2. AZULFIDINE [Concomitant]
     Indication: RHEUMATOID ARTHRITIS
  3. LAXOBERON [Concomitant]
     Indication: CONSTIPATION
     Route: 048
  4. PURSENNIDE [Concomitant]
     Indication: CONSTIPATION
  5. PREDNISOLONE [Concomitant]
     Indication: RHEUMATOID ARTHRITIS
  6. METHYCOBAL [Concomitant]
     Indication: NEURALGIA
  7. LIPITOR [Concomitant]
     Dosage: 5 MG, UNK
  8. BLOPRESS [Concomitant]
     Indication: HYPERTENSION
  9. MOHRUS [Concomitant]
     Indication: RHEUMATOID ARTHRITIS
  10. INDOMETHACIN [Concomitant]
     Indication: MUSCULOSKELETAL PAIN
     Dosage: UNK

REACTIONS (1)
  - DEATH [None]
